FAERS Safety Report 9705192 (Version 2)
Quarter: 2013Q4

REPORT INFORMATION
  Report Type: Spontaneous
  Country: PT (occurrence: PT)
  Receive Date: 20131122
  Receipt Date: 20131216
  Transmission Date: 20140711
  Serious: Yes (Other)
  Sender: FDA-Public Use
  Company Number: PT-AMGEN-PRTSP2013082122

PATIENT
  Age: 55 Year
  Sex: Male

DRUGS (5)
  1. ENBREL [Suspect]
     Indication: PSORIATIC ARTHROPATHY
     Dosage: 50 MG, 2X/WEEK
     Route: 065
     Dates: start: 20130705, end: 20131017
  2. ENBREL [Suspect]
     Dosage: 50 MG, WEEKLY
     Route: 065
     Dates: start: 20131017, end: 20131115
  3. SIMVASTATIN [Concomitant]
     Dosage: UNK
  4. LERCANIDIPINE [Concomitant]
     Dosage: UNK
  5. FUROSEMIDE [Concomitant]
     Dosage: UNK

REACTIONS (1)
  - Squamous cell carcinoma [Recovered/Resolved]
